FAERS Safety Report 20758353 (Version 2)
Quarter: 2022Q2

REPORT INFORMATION
  Report Type: Spontaneous
  Country: US (occurrence: US)
  Receive Date: 20220427
  Receipt Date: 20220512
  Transmission Date: 20220721
  Serious: No
  Sender: FDA-Public Use
  Company Number: US-LUPIN PHARMACEUTICALS INC.-2022-06165

PATIENT
  Sex: Male

DRUGS (1)
  1. ALBUTEROL SULFATE [Suspect]
     Active Substance: ALBUTEROL SULFATE
     Indication: Product used for unknown indication
     Dosage: UNK UNK, QID (2 PUFF IN TO THE LUNGS)

REACTIONS (5)
  - Device mechanical issue [Unknown]
  - Wrong technique in product usage process [Unknown]
  - Therapeutic product ineffective [Unknown]
  - Product quality issue [Unknown]
  - No adverse event [Unknown]
